FAERS Safety Report 9681007 (Version 1)
Quarter: 2013Q4

REPORT INFORMATION
  Report Type: Spontaneous
  Country: US (occurrence: None)
  Receive Date: 20131108
  Receipt Date: 20131108
  Transmission Date: 20140711
  Serious: Yes (Hospitalization)
  Sender: FDA-Public Use
  Company Number: None

PATIENT
  Age: 16 Year
  Sex: Male
  Weight: 75.2 kg

DRUGS (15)
  1. MANNITOL [Suspect]
     Indication: MEDULLOBLASTOMA
     Dosage: 12 G, ONCE, IA
     Route: 014
     Dates: start: 20131028
  2. HYDROCORTISONE SODIUM SUCCINATE [Concomitant]
  3. SODIUM THIOSULFATE [Concomitant]
  4. DEXAMETHASONE [Concomitant]
  5. ONDANSETRON [Concomitant]
  6. LORAZEPAM [Concomitant]
  7. PHENOBARBITAL [Concomitant]
  8. DIPHENHYDRAMINE [Concomitant]
  9. RANITIDINE [Concomitant]
  10. DOPAMINE [Concomitant]
  11. METRONIDAZOLE [Concomitant]
  12. LEVOTHYROXINE [Concomitant]
  13. SODIUM PHOSPHATE [Concomitant]
  14. MAGNESIUM SULFATE [Concomitant]
  15. GADOBUTROL [Concomitant]

REACTIONS (2)
  - Cerebral infarction [None]
  - Wrong technique in drug usage process [None]
